FAERS Safety Report 15898297 (Version 1)
Quarter: 2019Q1

REPORT INFORMATION
  Report Type: Spontaneous
  Country: AT (occurrence: AT)
  Receive Date: 20190201
  Receipt Date: 20190201
  Transmission Date: 20190417
  Serious: Yes (Other)
  Sender: FDA-Public Use
  Company Number: AT-ASTRAZENECA-2019SE14857

PATIENT
  Sex: Male

DRUGS (19)
  1. LEPONEX [Suspect]
     Active Substance: CLOZAPINE
     Dosage: 50.0MG UNKNOWN
     Route: 065
     Dates: start: 20181207, end: 20181211
  2. NAPROXEN. [Concomitant]
     Active Substance: NAPROXEN
     Dosage: 500.0MG UNKNOWN
  3. INEGY [Concomitant]
     Active Substance: EZETIMIBE\SIMVASTATIN
     Dosage: 20.0MG UNKNOWN
  4. LEGALON [Concomitant]
     Active Substance: DIETARY SUPPLEMENT\HERBALS\MILK THISTLE
     Dosage: 140.0MG UNKNOWN
  5. NOMEXOR [Concomitant]
     Active Substance: NEBIVOLOL HYDROCHLORIDE
     Dosage: SINCE YEARS5.0MG UNKNOWN
  6. LEPONEX [Suspect]
     Active Substance: CLOZAPINE
     Dosage: UNKNOWN
     Route: 065
  7. CANDESARTAN. [Concomitant]
     Active Substance: CANDESARTAN
     Dosage: SINCE YEARS16.0MG UNKNOWN
  8. SEROQUEL [Suspect]
     Active Substance: QUETIAPINE FUMARATE
     Dosage: 500.0MG UNKNOWN
     Route: 048
  9. SIMVASTATIN. [Concomitant]
     Active Substance: SIMVASTATIN
     Dosage: 40.0MG UNKNOWN
  10. TEMESTA [LORAZEPAM] [Suspect]
     Active Substance: LORAZEPAM
     Dosage: 2.5MG UNKNOWN
     Route: 065
     Dates: start: 20181213
  11. DEPAKINE CR [Concomitant]
     Active Substance: VALPROATE SODIUM
     Dosage: SINCE YEARS2500.0MG UNKNOWN
  12. AKINETON [Suspect]
     Active Substance: BIPERIDEN HYDROCHLORIDE
     Dosage: 8.0MG UNKNOWN
     Route: 065
     Dates: start: 20181213, end: 20181220
  13. PANTOPRAZOL [Concomitant]
     Active Substance: PANTOPRAZOLE SODIUM
     Dosage: 40.0MG UNKNOWN
  14. MOLAXOLE [Concomitant]
     Active Substance: POLYETHYLENE GLYCOL 3350\POTASSIUM CHLORIDE\SODIUM BICARBONATE\SODIUM CHLORIDE
     Dosage: 1.0DF UNKNOWN
  15. SEROQUEL [Suspect]
     Active Substance: QUETIAPINE FUMARATE
     Dosage: 200.0MG UNKNOWN
     Route: 048
     Dates: start: 20181219
  16. TRITTICO [Concomitant]
     Active Substance: TRAZODONE HYDROCHLORIDE
     Dosage: SINCE WEEKS450.0MG UNKNOWN
  17. DOMINAL (PROTHIPENDYL HYDROCHLORIDE) [Concomitant]
     Active Substance: PROTHIPENDYL HYDROCHLORIDE
     Dosage: SINCE YEARS80.0MG UNKNOWN
     Dates: end: 20181212
  18. ZOLDEM [Concomitant]
     Active Substance: ZOLPIDEM TARTRATE
     Dosage: SINCE WEEKS20.0MG UNKNOWN
     Dates: end: 20181212
  19. METFORMIN [Concomitant]
     Active Substance: METFORMIN HYDROCHLORIDE
     Dosage: 500.0MG UNKNOWN

REACTIONS (1)
  - Faecaloma [Recovered/Resolved]

NARRATIVE: CASE EVENT DATE: 20181210
